FAERS Safety Report 6092376-7 (Version None)
Quarter: 2009Q1

REPORT INFORMATION
  Report Type: 
  Country: None (occurrence: None)
  Receive Date: 20090223
  Receipt Date: 20090223
  Transmission Date: 20090719
  Serious: Yes (Other)
  Sender: FDA-Public Use
  Company Number: None

PATIENT
  Age: 59 Year
  Sex: Male
  Weight: 65.7716 kg

DRUGS (2)
  1. ULTRAM ER [Suspect]
     Indication: BACK PAIN
     Dosage: 200MG A DAILY PO APPROX 2 YEARS
     Route: 048
     Dates: start: 20061212, end: 20090220
  2. ULTRAM ER [Suspect]

REACTIONS (4)
  - BACK PAIN [None]
  - DRUG INEFFECTIVE [None]
  - FEELING OF BODY TEMPERATURE CHANGE [None]
  - INSOMNIA [None]
